FAERS Safety Report 16413687 (Version 3)
Quarter: 2020Q3

REPORT INFORMATION
  Report Type: Spontaneous
  Country: US (occurrence: US)
  Receive Date: 20190611
  Receipt Date: 20200824
  Transmission Date: 20201102
  Serious: Yes (Life-Threatening, Hospitalization, Other)
  Sender: FDA-Public Use
  Company Number: US-GLAXOSMITHKLINE-US2019GSK103072

PATIENT
  Age: 12 Year
  Sex: Male
  Weight: 40 kg

DRUGS (1)
  1. BUPROPION. [Suspect]
     Active Substance: BUPROPION
     Indication: PRODUCT USED FOR UNKNOWN INDICATION
     Dosage: 4500 MG
     Route: 048
     Dates: start: 201904, end: 201904

REACTIONS (17)
  - Seizure [Unknown]
  - Electrocardiogram QT interval abnormal [Recovering/Resolving]
  - Exposure via ingestion [Unknown]
  - Torsade de pointes [Recovering/Resolving]
  - Cardiotoxicity [Unknown]
  - Bradycardia [Recovering/Resolving]
  - Hypotension [Recovering/Resolving]
  - Toxicity to various agents [Recovering/Resolving]
  - Overdose [Unknown]
  - Cardiac arrest [Recovering/Resolving]
  - Electrocardiogram QRS complex abnormal [Recovering/Resolving]
  - Cardiogenic shock [Recovered/Resolved]
  - Tachyarrhythmia [Recovering/Resolving]
  - Blood lactic acid increased [Recovering/Resolving]
  - Tachycardia [Recovering/Resolving]
  - Drug level above therapeutic [Unknown]
  - Prescription drug used without a prescription [Unknown]

NARRATIVE: CASE EVENT DATE: 201904
